FAERS Safety Report 17573261 (Version 1)
Quarter: 2020Q1

REPORT INFORMATION
  Report Type: Report from Study
  Country: BR (occurrence: BR)
  Receive Date: 20200323
  Receipt Date: 20200323
  Transmission Date: 20200409
  Serious: Yes (Other)
  Sender: FDA-Public Use
  Company Number: BR-JNJFOC-20200320980

PATIENT
  Sex: Female
  Weight: 48 kg

DRUGS (1)
  1. BIO-MANGUINHOS INFLIXIMABE [Suspect]
     Active Substance: INFLIXIMAB
     Indication: RHEUMATOID ARTHRITIS
     Dosage: DRUG STOP: JUL OR AUG-2019.
     Route: 042
     Dates: start: 20170314

REACTIONS (1)
  - Breast cancer [Unknown]
